FAERS Safety Report 9159386 (Version 1)
Quarter: 2013Q1

REPORT INFORMATION
  Report Type: Spontaneous
  Country: US (occurrence: None)
  Receive Date: 20130312
  Receipt Date: 20130312
  Transmission Date: 20140127
  Serious: Yes (Hospitalization)
  Sender: FDA-Public Use
  Company Number: None

PATIENT
  Age: 85 Year
  Sex: Female

DRUGS (3)
  1. WARFARIN [Suspect]
     Indication: ATRIAL FIBRILLATION
     Route: 048
  2. VITAMIN C [Concomitant]
  3. ATENOLOL [Concomitant]

REACTIONS (6)
  - Melaena [None]
  - Dizziness [None]
  - Haematemesis [None]
  - Nausea [None]
  - Diarrhoea [None]
  - Diverticulum intestinal [None]
